FAERS Safety Report 6129802-0 (Version None)
Quarter: 2009Q1

REPORT INFORMATION
  Report Type: 
  Country: None (occurrence: None)
  Receive Date: 20090324
  Receipt Date: 20090315
  Transmission Date: 20090719
  Serious: Yes (Other)
  Sender: FDA-Public Use
  Company Number: US-JNJFOC-20090304760

PATIENT
  Sex: Female

DRUGS (6)
  1. FAST ACTING MYLANTA ULTRATABS COOL MINT [Suspect]
     Indication: DYSPEPSIA
     Route: 048
  2. ARICEPT [Concomitant]
  3. DIGOXIN [Concomitant]
  4. COUMADIN [Concomitant]
  5. LOVASTATIN [Concomitant]
  6. TOPROL-XL [Concomitant]

REACTIONS (4)
  - DEMENTIA [None]
  - EXPIRED DRUG ADMINISTERED [None]
  - PACEMAKER COMPLICATION [None]
  - VOMITING [None]
